FAERS Safety Report 17829760 (Version 1)
Quarter: 2020Q2

REPORT INFORMATION
  Report Type: Report from Study
  Country: ZA (occurrence: ZA)
  Receive Date: 20200527
  Receipt Date: 20200527
  Transmission Date: 20200714
  Serious: Yes (Other)
  Sender: FDA-Public Use
  Company Number: ZA-JNJFOC-20200529243

PATIENT
  Age: 39 Year
  Sex: Female
  Weight: 38 kg

DRUGS (8)
  1. PYRAZINAMIDE. [Suspect]
     Active Substance: PYRAZINAMIDE
     Indication: PULMONARY TUBERCULOSIS
     Route: 048
     Dates: start: 20200115, end: 20200514
  2. MOXIFLOXACIN. [Suspect]
     Active Substance: MOXIFLOXACIN
     Indication: PULMONARY TUBERCULOSIS
     Route: 048
     Dates: start: 20200115, end: 20200514
  3. EMTRICITABINE + TENOFOVIR DISOPROXIL FUMARATE [Concomitant]
     Active Substance: EMTRICITABINE\TENOFOVIR DISOPROXIL FUMARATE
     Indication: HIV INFECTION
     Route: 048
     Dates: start: 20200106
  4. BEDAQUILINE [Suspect]
     Active Substance: BEDAQUILINE
     Indication: PULMONARY TUBERCULOSIS
     Route: 048
     Dates: start: 20200115
  5. BEDAQUILINE [Suspect]
     Active Substance: BEDAQUILINE
     Route: 048
     Dates: end: 20200514
  6. PRETOMANID [Suspect]
     Active Substance: PRETOMANID
     Indication: PULMONARY TUBERCULOSIS
     Route: 048
     Dates: start: 20200115, end: 20200514
  7. RILPIVIRINE [Concomitant]
     Active Substance: RILPIVIRINE
     Indication: RETROVIRAL INFECTION
     Route: 048
     Dates: start: 20200106
  8. SPERSALLERG [Concomitant]
     Indication: CONJUNCTIVITIS
     Route: 061
     Dates: start: 20200331

REACTIONS (1)
  - Hepatitis [Not Recovered/Not Resolved]
